FAERS Safety Report 5478285-2 (Version None)
Quarter: 2007Q4

REPORT INFORMATION
  Report Type: 
  Country: None (occurrence: None)
  Receive Date: 20071005
  Receipt Date: 20070926
  Transmission Date: 20080405
  Serious: Yes (Hospitalization)
  Sender: FDA-Public Use
  Company Number: JP-AMGEN-US221916

PATIENT
  Sex: Female

DRUGS (17)
  1. ENBREL [Suspect]
     Indication: RHEUMATOID ARTHRITIS
     Route: 058
     Dates: start: 20060202
  2. RHEUMATREX [Suspect]
     Indication: RHEUMATOID ARTHRITIS
     Dosage: UNKNOWN
     Route: 048
     Dates: start: 20050927, end: 20060816
  3. RHEUMATREX [Suspect]
     Dosage: UNKNOWN
     Route: 048
     Dates: start: 20060801
  4. ACINON [Concomitant]
     Dosage: UNKNOWN
     Route: 048
  5. CYTOTEC [Concomitant]
     Dosage: UNKNOWN
     Route: 045
  6. ATELEC [Concomitant]
     Dosage: UNKNOWN
     Route: 048
  7. MICARDIS [Concomitant]
     Dosage: UNKNOWN
     Route: 048
  8. HALCION [Concomitant]
     Dosage: UNKNOWN
     Route: 048
  9. ALFAROL [Concomitant]
     Dosage: UNKNOWN
     Route: 048
  10. DEPAS [Concomitant]
     Dosage: UNKNOWN
     Route: 048
  11. IDOMETHINE [Concomitant]
     Indication: RHEUMATOID ARTHRITIS
     Dosage: UNKNOWN
     Route: 061
  12. MOBIC [Concomitant]
     Indication: RHEUMATOID ARTHRITIS
     Dosage: UNKNOWN
     Route: 048
  13. MILTAX [Concomitant]
     Indication: RHEUMATOID ARTHRITIS
     Dosage: UNKNOWN
     Route: 048
  14. IRSOGLADINE MALEATE [Concomitant]
     Dosage: UNKNOWN
     Route: 048
  15. EVISTA [Concomitant]
     Dosage: UNKNOWN
     Route: 048
  16. ISCOTIN [Concomitant]
     Dosage: UNKNOWN
     Route: 048
  17. PNEUMOVAX 23 [Concomitant]
     Dosage: UNKNOWN
     Route: 042

REACTIONS (3)
  - PNEUMOCYSTIS JIROVECI PNEUMONIA [None]
  - PRODUCTIVE COUGH [None]
  - PYREXIA [None]
